FAERS Safety Report 18570078 (Version 1)
Quarter: 2020Q4

REPORT INFORMATION
  Report Type: Spontaneous
  Country: US (occurrence: US)
  Receive Date: 20201202
  Receipt Date: 20201202
  Transmission Date: 20210114
  Serious: Yes (Hospitalization)
  Sender: FDA-Public Use
  Company Number: None

PATIENT
  Age: 61 Year
  Sex: Male
  Weight: 179.17 kg

DRUGS (1)
  1. LINEZOLID (LINEZOLID 600MG TAB, UD) [Suspect]
     Active Substance: LINEZOLID
     Indication: ATRIAL FIBRILLATION
     Route: 048
     Dates: start: 20200812, end: 20200822

REACTIONS (1)
  - Thrombocytopenia [None]

NARRATIVE: CASE EVENT DATE: 20200824
